FAERS Safety Report 8124670-X (Version None)
Quarter: 2012Q1

REPORT INFORMATION
  Report Type: 
  Country: None (occurrence: None)
  Receive Date: 20120209
  Receipt Date: 20120209
  Transmission Date: 20120608
  Serious: Yes (Other)
  Sender: FDA-Public Use
  Company Number: None

PATIENT
  Sex: Female
  Weight: 74.4 kg

DRUGS (1)
  1. AZTREONAM [Suspect]
     Dosage: 1000MG
     Route: 042

REACTIONS (6)
  - CONJUNCTIVAL HYPERAEMIA [None]
  - EYE SWELLING [None]
  - BODY TEMPERATURE INCREASED [None]
  - HEART RATE INCREASED [None]
  - FLUSHING [None]
  - RASH [None]
